FAERS Safety Report 5995809-7 (Version None)
Quarter: 2008Q4

REPORT INFORMATION
  Report Type: 
  Country: None (occurrence: None)
  Receive Date: 20081212
  Receipt Date: 20081203
  Transmission Date: 20090506
  Serious: Yes (Other)
  Sender: FDA-Public Use
  Company Number: US-JNJFOC-20081200217

PATIENT
  Sex: Male
  Weight: 78.47 kg

DRUGS (3)
  1. REMICADE [Suspect]
     Indication: CROHN'S DISEASE
     Route: 042
  2. IMURAN [Concomitant]
  3. NEXIUM [Concomitant]

REACTIONS (2)
  - DIFFUSE LARGE B-CELL LYMPHOMA STAGE IV [None]
  - EPSTEIN-BARR VIRUS TEST POSITIVE [None]
